FAERS Safety Report 9168487 (Version 1)
Quarter: 2013Q1

REPORT INFORMATION
  Report Type: Spontaneous
  Country: FR (occurrence: None)
  Receive Date: 20130307
  Receipt Date: 20130307
  Transmission Date: 20140127
  Serious: Yes (Other)
  Sender: FDA-Public Use
  Company Number: 2013-03563

PATIENT
  Age: 40 Year
  Sex: Male

DRUGS (6)
  1. SERTRALINE HYDROCHLORIDE [Suspect]
     Indication: PRODUCT USED FOR UNKNOWN INDICATION
     Dosage: 1 DOSE
     Route: 048
     Dates: start: 201112
  2. BACLOFEN [Suspect]
     Indication: PRODUCT USED FOR UNKNOWN INDICATION
     Route: 048
     Dates: start: 201010
  3. SORIATANE [Suspect]
     Indication: DERMATOSIS
     Dosage: DOSE NOT STATED
     Route: 048
     Dates: start: 20110815, end: 20111213
  4. DANTRIUM [Suspect]
     Indication: PRODUCT USED FOR UNKNOWN INDICATION
     Route: 048
     Dates: start: 201010, end: 201202
  5. CERIS [Suspect]
     Indication: PRODUCT USED FOR UNKNOWN INDICATION
     Route: 048
     Dates: start: 201010
  6. CURACNE [Suspect]
     Indication: ACNE
     Route: 048
     Dates: start: 20021213

REACTIONS (11)
  - Acne [None]
  - Acne [None]
  - Miliaria [None]
  - Rash papular [None]
  - Cyst [None]
  - Muscle spasms [None]
  - Fatigue [None]
  - Back pain [None]
  - Subcutaneous abscess [None]
  - Skin lesion [None]
  - Psoriasis [None]
